FAERS Safety Report 9937780 (Version 1)
Quarter: 2014Q1

REPORT INFORMATION
  Report Type: Spontaneous
  Country: US (occurrence: US)
  Receive Date: 20140303
  Receipt Date: 20140303
  Transmission Date: 20141002
  Serious: No
  Sender: FDA-Public Use
  Company Number: US-BIOGENIDEC-2014BI016118

PATIENT
  Sex: Male
  Weight: 81 kg

DRUGS (7)
  1. TECFIDERA [Suspect]
     Indication: MULTIPLE SCLEROSIS
     Route: 048
     Dates: start: 201308
  2. WELCHOL [Concomitant]
  3. CIALIS [Concomitant]
  4. PENTOXIFYLLIN [Concomitant]
  5. BACLOFEN [Concomitant]
  6. ATORVASTATIN [Concomitant]
  7. JALYN [Concomitant]

REACTIONS (3)
  - Muscular weakness [Unknown]
  - Weight decreased [Unknown]
  - Feeling hot [Recovered/Resolved]
